FAERS Safety Report 9642707 (Version 1)
Quarter: 2013Q4

REPORT INFORMATION
  Report Type: Spontaneous
  Country: US (occurrence: US)
  Receive Date: 20131024
  Receipt Date: 20131024
  Transmission Date: 20140711
  Serious: Yes (Hospitalization)
  Sender: FDA-Public Use
  Company Number: US-SA-2013SA105966

PATIENT
  Sex: Female

DRUGS (2)
  1. AMARYL [Suspect]
     Route: 065
  2. METFORMIN [Suspect]
     Route: 065

REACTIONS (2)
  - Urinary tract infection [Unknown]
  - Cardiac failure congestive [Unknown]
